FAERS Safety Report 15264201 (Version 1)
Quarter: 2018Q3

REPORT INFORMATION
  Report Type: Spontaneous
  Country: US (occurrence: US)
  Receive Date: 20180721
  Receipt Date: 20180721
  Transmission Date: 20181010
  Serious: Yes (Other)
  Sender: FDA-Public Use
  Company Number: None

PATIENT
  Age: 64 Year
  Sex: Female
  Weight: 90 kg

DRUGS (9)
  1. GLUCOSAMINE [Concomitant]
     Active Substance: GLUCOSAMINE
  2. VALSARTAN AND HYDROCHLOROTHIAZIDE [Suspect]
     Active Substance: HYDROCHLOROTHIAZIDE\VALSARTAN
     Indication: HYPERTENSION
     Route: 048
     Dates: start: 20180613, end: 20180628
  3. LIPITOR [Concomitant]
     Active Substance: ATORVASTATIN CALCIUM
  4. COENZYME Q10 [Concomitant]
     Active Substance: UBIDECARENONE
  5. FISH OIL [Concomitant]
     Active Substance: FISH OIL
  6. BIOTIN [Concomitant]
     Active Substance: BIOTIN
  7. ASAXANTHIN [Concomitant]
  8. KELP [Concomitant]
     Active Substance: KELP
  9. ENBREL [Concomitant]
     Active Substance: ETANERCEPT

REACTIONS (4)
  - Dizziness [None]
  - Myalgia [None]
  - Recalled product [None]
  - Muscle spasms [None]
